FAERS Safety Report 8961693 (Version 1)
Quarter: 2012Q4

REPORT INFORMATION
  Report Type: 
  Country: US (occurrence: US)
  Receive Date: 20121212
  Receipt Date: 20121212
  Transmission Date: 20130627
  Serious: No
  Sender: FDA-Public Use
  Company Number: US-PFIZER INC-2012312114

PATIENT
  Age: 87 Year
  Sex: Female
  Weight: 44.44 kg

DRUGS (6)
  1. LYRICA [Suspect]
     Indication: POST HERPETIC NEURALGIA
     Dosage: 50 mg, 2x/day
     Route: 048
  2. LYRICA [Suspect]
     Dosage: 25 mg, 2x/day
     Route: 048
  3. LYRICA [Suspect]
     Dosage: UNK, 2x/day
     Route: 048
  4. LISINOPRIL [Concomitant]
     Indication: BLOOD PRESSURE HIGH
     Dosage: 40 mg, UNK
  5. SIMVASTATIN [Concomitant]
     Indication: HIGH CHOLESTEROL
     Dosage: 20 mg, UNK
  6. CALCIUM 600+D [Concomitant]
     Indication: VITAMIN SUPPLEMENTATION
     Dosage: UNK

REACTIONS (4)
  - Hair disorder [Not Recovered/Not Resolved]
  - Balance disorder [Not Recovered/Not Resolved]
  - Gait disturbance [Not Recovered/Not Resolved]
  - Blood glucose increased [Not Recovered/Not Resolved]
